FAERS Safety Report 23192594 (Version 1)
Quarter: 2023Q4

REPORT INFORMATION
  Report Type: Spontaneous
  Country: PK (occurrence: PK)
  Receive Date: 20231116
  Receipt Date: 20231116
  Transmission Date: 20240109
  Serious: Yes (Death)
  Sender: FDA-Public Use
  Company Number: PK-002147023-NVSC2023PK242718

PATIENT
  Sex: Female

DRUGS (1)
  1. EXELON [Suspect]
     Active Substance: RIVASTIGMINE TARTRATE
     Indication: Dementia
     Dosage: 9.5 MG, QD PATCH (18 MG/10 CM2)
     Route: 062
     Dates: start: 20180813

REACTIONS (1)
  - Death [Fatal]
